FAERS Safety Report 8017342-3 (Version None)
Quarter: 2012Q1

REPORT INFORMATION
  Report Type: 
  Country: None (occurrence: None)
  Receive Date: 20120102
  Receipt Date: 20111227
  Transmission Date: 20120608
  Serious: Yes (Death, Hospitalization, Other)
  Sender: FDA-Public Use
  Company Number: JP-ROCHE-1014446

PATIENT
  Sex: Female
  Weight: 73 kg

DRUGS (5)
  1. XELODA [Suspect]
     Indication: COLON CANCER METASTATIC
     Dosage: IT IS TWO ADMINISTERING WEEKLY HOLIDAY MEDICINE FOR TWO WEEKS.
     Route: 048
     Dates: start: 20110324, end: 20110915
  2. FLUOROURACIL [Concomitant]
     Indication: COLON CANCER METASTATIC
     Dosage: DOSAGE IS UNCERTAIN.
     Route: 040
     Dates: start: 20100510, end: 20110201
  3. LEVOLEUCOVORIN CALCIUM [Concomitant]
     Indication: COLON CANCER METASTATIC
     Dosage: DOSAGE IS UNCERTAIN.
     Route: 041
     Dates: start: 20100510, end: 20110201
  4. AVASTIN [Suspect]
     Indication: COLON CANCER METASTATIC
     Route: 041
     Dates: start: 20100609, end: 20100806
  5. OXALIPLATIN [Concomitant]
     Indication: COLON CANCER METASTATIC
     Dosage: DOSAGE IS UNCERTAIN.
     Route: 041
     Dates: start: 20100510, end: 20110225

REACTIONS (8)
  - BILE DUCT STENOSIS [None]
  - PANCREATIC ENLARGEMENT [None]
  - METASTASES TO PERITONEUM [None]
  - CHOLANGITIS [None]
  - MULTI-ORGAN FAILURE [None]
  - URETERIC STENOSIS [None]
  - RETROPERITONEAL FIBROSIS [None]
  - HYDRONEPHROSIS [None]
